FAERS Safety Report 14662245 (Version 1)
Quarter: 2018Q1

REPORT INFORMATION
  Report Type: Spontaneous
  Country: US (occurrence: US)
  Receive Date: 20180321
  Receipt Date: 20180321
  Transmission Date: 20180509
  Serious: No
  Sender: FDA-Public Use
  Company Number: US-LUPIN PHARMACEUTICALS INC.-2018-01515

PATIENT
  Sex: Female

DRUGS (1)
  1. MIBELAS 24 FE [Suspect]
     Active Substance: ETHINYL ESTRADIOL\NORETHINDRONE ACETATE
     Indication: PRODUCT USED FOR UNKNOWN INDICATION
     Dosage: UNK
     Route: 065

REACTIONS (7)
  - Acne [Unknown]
  - Vaginal haemorrhage [Unknown]
  - Anxiety [Unknown]
  - Polymenorrhoea [Unknown]
  - Pruritus generalised [Unknown]
  - Pain in extremity [Unknown]
  - Back pain [Unknown]
